FAERS Safety Report 12093269 (Version 2)
Quarter: 2016Q1

REPORT INFORMATION
  Report Type: Report from Study
  Country: CA (occurrence: CA)
  Receive Date: 20160219
  Receipt Date: 20160223
  Transmission Date: 20160526
  Serious: Yes (Other)
  Sender: FDA-Public Use
  Company Number: CA-ROCHE-1674154

PATIENT
  Sex: Male

DRUGS (19)
  1. DIAZEPAM. [Concomitant]
     Active Substance: DIAZEPAM
  2. AMLODIPINE [Concomitant]
     Active Substance: AMLODIPINE BESYLATE
  3. VITAMIN C [Concomitant]
     Active Substance: ASCORBIC ACID
  4. ESBRIET [Suspect]
     Active Substance: PIRFENIDONE
     Indication: IDIOPATHIC PULMONARY FIBROSIS
     Route: 048
     Dates: start: 20151117
  5. ESBRIET [Suspect]
     Active Substance: PIRFENIDONE
     Dosage: 801 MG - 534 MG - 801 MG
     Route: 048
     Dates: start: 20151231
  6. RAMIPRIL. [Concomitant]
     Active Substance: RAMIPRIL
  7. ESBRIET [Suspect]
     Active Substance: PIRFENIDONE
     Route: 048
     Dates: start: 20160114
  8. COLACE [Concomitant]
     Active Substance: DOCUSATE SODIUM
  9. EZETIMIBE. [Concomitant]
     Active Substance: EZETIMIBE
  10. ESBRIET [Suspect]
     Active Substance: PIRFENIDONE
     Route: 048
     Dates: start: 20151201
  11. ATORVASTATIN [Concomitant]
     Active Substance: ATORVASTATIN
  12. TAMSULOSIN [Concomitant]
     Active Substance: TAMSULOSIN
  13. ESBRIET [Suspect]
     Active Substance: PIRFENIDONE
     Route: 048
     Dates: start: 20151124
  14. ESBRIET [Suspect]
     Active Substance: PIRFENIDONE
     Dosage: 534 MG - 534 MG - 801 MG
     Route: 048
     Dates: start: 20151217
  15. ENDOCET [Concomitant]
     Active Substance: ACETAMINOPHEN\OXYCODONE HYDROCHLORIDE
     Indication: PAIN
     Dosage: WHEN REQUIRED
     Route: 065
  16. RABEPRAZOLE [Concomitant]
     Active Substance: RABEPRAZOLE
  17. ESBRIET [Suspect]
     Active Substance: PIRFENIDONE
     Route: 048
     Dates: start: 20151203
  18. HCTZ [Concomitant]
     Active Substance: HYDROCHLOROTHIAZIDE
  19. ASPIRIN. [Concomitant]
     Active Substance: ASPIRIN
     Route: 065

REACTIONS (4)
  - Diarrhoea [Unknown]
  - Flatulence [Not Recovered/Not Resolved]
  - Fatigue [Not Recovered/Not Resolved]
  - Cardiac disorder [Not Recovered/Not Resolved]
